FAERS Safety Report 13085922 (Version 1)
Quarter: 2017Q1

REPORT INFORMATION
  Report Type: Spontaneous
  Country: RU (occurrence: RU)
  Receive Date: 20170104
  Receipt Date: 20170104
  Transmission Date: 20170428
  Serious: Yes (Hospitalization, Other)
  Sender: FDA-Public Use
  Company Number: RU-BAYER-2016-245804

PATIENT
  Sex: Female

DRUGS (1)
  1. INTERFERON BETA - 1B [Suspect]
     Active Substance: INTERFERON BETA-1B
     Indication: MULTIPLE SCLEROSIS
     Dosage: 0.3 MG, QOD
     Route: 058

REACTIONS (20)
  - Arthralgia [None]
  - Pulmonary arterial pressure abnormal [None]
  - Multiple sclerosis relapse [None]
  - Exercise tolerance decreased [None]
  - Pulmonary artery dilatation [None]
  - Multiple sclerosis relapse [None]
  - Multiple sclerosis relapse [None]
  - Dyspnoea [Not Recovered/Not Resolved]
  - Influenza like illness [None]
  - Drug intolerance [None]
  - Pulmonary hypertension [None]
  - Pulmonary hypertension [None]
  - Body temperature increased [None]
  - Cardiomegaly [None]
  - Multiple sclerosis [None]
  - Dyspnoea exertional [None]
  - Myalgia [None]
  - Drug ineffective [None]
  - Myocarditis [Not Recovered/Not Resolved]
  - Chills [None]

NARRATIVE: CASE EVENT DATE: 2007
